FAERS Safety Report 8940988 (Version 1)
Quarter: 2012Q4

REPORT INFORMATION
  Report Type: 
  Country: JP (occurrence: JP)
  Receive Date: 20121203
  Receipt Date: 20121203
  Transmission Date: 20130627
  Serious: Yes (Life-Threatening, Other)
  Sender: FDA-Public Use
  Company Number: JP-BAYER-2012-122608

PATIENT
  Age: 27 Year
  Sex: Female

DRUGS (4)
  1. NIFEDIPINE [Suspect]
     Indication: THREATENED PREMATURE LABOR
     Route: 048
  2. RITODRINE HYDROCHLORIDE [Concomitant]
     Indication: THREATENED PREMATURE LABOUR
     Dosage: UNK
     Route: 041
  3. MAGNESIUM SULFATE [Concomitant]
     Indication: THREATENED PREMATURE LABOUR
     Dosage: UNK
     Route: 041
  4. BETAMETHASONE [Concomitant]
     Dosage: UNK

REACTIONS (11)
  - Generalised oedema [None]
  - Urine output decreased [None]
  - Proteinuria [None]
  - Blood creatine phosphokinase increased [None]
  - Blood magnesium increased [None]
  - Pulmonary oedema [Recovered/Resolved]
  - Hypoxia [Recovered/Resolved]
  - Bradycardia [Recovered/Resolved]
  - Cardiac arrest [Recovered/Resolved]
  - Caesarean section [Recovered/Resolved]
  - Off label use [None]
